FAERS Safety Report 10528926 (Version 1)
Quarter: 2014Q4

REPORT INFORMATION
  Report Type: Report from Study
  Country: IT (occurrence: IT)
  Receive Date: 20141020
  Receipt Date: 20141020
  Transmission Date: 20150528
  Serious: Yes (Hospitalization)
  Sender: FDA-Public Use
  Company Number: IT-IPSEN BIOPHARMACEUTICALS, INC.-2014-5516

PATIENT
  Age: 59 Year
  Sex: Male
  Weight: 100 kg

DRUGS (8)
  1. PANTOPRAZOLE [Concomitant]
     Active Substance: PANTOPRAZOLE SODIUM
     Indication: PRODUCT USED FOR UNKNOWN INDICATION
     Dosage: NOT REPORTED
     Route: 065
  2. IPSTYL [Suspect]
     Active Substance: LANREOTIDE ACETATE
     Indication: NEUROENDOCRINE TUMOUR
     Dosage: NOT REPORTED
     Route: 065
     Dates: start: 20140507, end: 20140812
  3. PROCORALAN [Concomitant]
     Active Substance: IVABRADINE
     Indication: PRODUCT USED FOR UNKNOWN INDICATION
     Dosage: NOT REPORTED
     Route: 065
  4. MOTILIUM [Concomitant]
     Active Substance: DOMPERIDONE
     Indication: PRODUCT USED FOR UNKNOWN INDICATION
     Dosage: NOT REPORTED
     Route: 065
  5. LASIX [Concomitant]
     Active Substance: FUROSEMIDE
     Indication: PRODUCT USED FOR UNKNOWN INDICATION
     Dosage: NOT REPORTED
     Route: 065
  6. SELEDIE [Concomitant]
     Indication: PRODUCT USED FOR UNKNOWN INDICATION
     Dosage: 1 VIAL
     Route: 065
  7. KANRENOL [Concomitant]
     Active Substance: CANRENOATE POTASSIUM
     Indication: PRODUCT USED FOR UNKNOWN INDICATION
     Dosage: NOT REPORTED
     Route: 065
  8. NOVONORM [Concomitant]
     Active Substance: REPAGLINIDE
     Indication: PRODUCT USED FOR UNKNOWN INDICATION
     Dosage: NOT REPORTED
     Route: 065

REACTIONS (13)
  - Alanine aminotransferase increased [Recovering/Resolving]
  - Cholelithiasis [Recovering/Resolving]
  - Gastric mucosal lesion [Recovering/Resolving]
  - Abdominal pain [Recovering/Resolving]
  - Hyperuricaemia [Recovering/Resolving]
  - Sinus tachycardia [Recovering/Resolving]
  - Hypertriglyceridaemia [Recovering/Resolving]
  - Electrolyte imbalance [Recovering/Resolving]
  - Hepatic steatosis [Recovering/Resolving]
  - Hypokalaemia [Recovering/Resolving]
  - Hyperglycaemia [Recovering/Resolving]
  - Electrocardiogram repolarisation abnormality [Recovering/Resolving]
  - Blood sodium decreased [Recovering/Resolving]

NARRATIVE: CASE EVENT DATE: 20140729
